FAERS Safety Report 5770175-0 (Version None)
Quarter: 2008Q2

REPORT INFORMATION
  Report Type: 
  Country: None (occurrence: None)
  Receive Date: 20080613
  Receipt Date: 20080423
  Transmission Date: 20081010
  Serious: No
  Sender: FDA-Public Use
  Company Number: US-ABBOTT-08P-163-0448657-00

PATIENT
  Sex: Male
  Weight: 47.67 kg

DRUGS (10)
  1. HUMIRA [Suspect]
     Indication: CROHN'S DISEASE
     Route: 058
     Dates: start: 20080422, end: 20080422
  2. HUMIRA [Suspect]
     Route: 058
     Dates: start: 20080310, end: 20080310
  3. HUMIRA [Suspect]
     Route: 058
     Dates: start: 20080408, end: 20080408
  4. HUMIRA [Suspect]
     Route: 058
     Dates: start: 20080505, end: 20080505
  5. METRONIDAZOLE HCL [Concomitant]
     Indication: CROHN'S DISEASE
  6. CIPROFLOXACIN HCL [Concomitant]
     Indication: CROHN'S DISEASE
  7. ASULFALAZINE [Concomitant]
     Indication: CROHN'S DISEASE
  8. PREDNISONE TAB [Concomitant]
     Indication: CROHN'S DISEASE
  9. ALPRAZOLAM [Concomitant]
     Indication: CROHN'S DISEASE
  10. LOPERAMIDE HYDROCHLORIDE [Concomitant]
     Indication: CROHN'S DISEASE

REACTIONS (1)
  - INCORRECT DOSE ADMINISTERED [None]
